FAERS Safety Report 17033064 (Version 4)
Quarter: 2019Q4

REPORT INFORMATION
  Report Type: Report from Study
  Country: None (occurrence: US)
  Receive Date: 20191114
  Receipt Date: 20191213
  Transmission Date: 20200122
  Serious: Yes (Hospitalization, Other)
  Sender: FDA-Public Use
  Company Number: US-ABBVIE-19P-163-2994939-00

PATIENT
  Age: 79 Year
  Sex: Male
  Weight: 56 kg

DRUGS (21)
  1. ACYCLOVIR. [Concomitant]
     Active Substance: ACYCLOVIR
     Indication: ANTIBIOTIC PROPHYLAXIS
     Route: 042
     Dates: start: 20190923
  2. CASPOFUNGIN [Concomitant]
     Active Substance: CASPOFUNGIN
     Indication: ANTIFUNGAL PROPHYLAXIS
     Route: 042
     Dates: start: 20190923, end: 20190923
  3. METFORMIN [Concomitant]
     Active Substance: METFORMIN HYDROCHLORIDE
     Route: 048
     Dates: start: 20191030, end: 20191105
  4. VENETOCLAX. [Suspect]
     Active Substance: VENETOCLAX
     Route: 048
     Dates: start: 20190920, end: 20190920
  5. VENETOCLAX. [Suspect]
     Active Substance: VENETOCLAX
     Route: 048
     Dates: start: 20191204
  6. LOPERAMIDE [Concomitant]
     Active Substance: LOPERAMIDE
     Indication: PROPHYLAXIS AGAINST DIARRHOEA
     Dosage: EVERY 4 HOURS AS NEEDED
     Route: 048
     Dates: start: 20191029
  7. ALVOCIDIB [Suspect]
     Active Substance: ALVOCIDIB
     Dosage: DOSE: 30 MG/M2 + 60 MG/M2
     Route: 042
     Dates: start: 20190920, end: 20191024
  8. ALVOCIDIB [Suspect]
     Active Substance: ALVOCIDIB
     Dosage: DOSE: 30 MG/M2 + 60 MG/M2
     Route: 042
     Dates: start: 20191204
  9. METFORMIN [Concomitant]
     Active Substance: METFORMIN HYDROCHLORIDE
     Indication: DIABETES MELLITUS
     Route: 048
     Dates: start: 20191003, end: 20191021
  10. VENETOCLAX. [Suspect]
     Active Substance: VENETOCLAX
     Indication: ACUTE MYELOID LEUKAEMIA REFRACTORY
     Route: 048
     Dates: start: 20190918, end: 20190918
  11. VENETOCLAX. [Suspect]
     Active Substance: VENETOCLAX
     Route: 048
     Dates: start: 20190921, end: 20190921
  12. VENETOCLAX. [Suspect]
     Active Substance: VENETOCLAX
     Route: 048
     Dates: start: 20191022, end: 20191103
  13. HALOPERIDOL. [Concomitant]
     Active Substance: HALOPERIDOL
     Indication: NAUSEA
     Dosage: EVERY SIX HOURS
     Route: 042
     Dates: start: 20190920
  14. METFORMIN [Concomitant]
     Active Substance: METFORMIN HYDROCHLORIDE
     Route: 048
     Dates: start: 20191108
  15. ACYCLOVIR. [Concomitant]
     Active Substance: ACYCLOVIR
     Indication: NEUTROPENIA
     Route: 048
     Dates: start: 20190912, end: 20190923
  16. ACYCLOVIR. [Concomitant]
     Active Substance: ACYCLOVIR
     Indication: ANTIVIRAL PROPHYLAXIS
  17. ALVOCIDIB [Suspect]
     Active Substance: ALVOCIDIB
     Indication: ACUTE MYELOID LEUKAEMIA RECURRENT
     Dosage: DOSE: 15 MG/M2 + 30 MG/M2
     Route: 042
     Dates: start: 20190918, end: 20190918
  18. VENETOCLAX. [Suspect]
     Active Substance: VENETOCLAX
     Route: 048
     Dates: start: 20190919, end: 20190919
  19. ALVOCIDIB [Suspect]
     Active Substance: ALVOCIDIB
     Dosage: DOSE: 22.5 MG/M2 + 45 MG/M2
     Route: 042
     Dates: start: 20190919, end: 20190919
  20. CASPOFUNGIN [Concomitant]
     Active Substance: CASPOFUNGIN
     Route: 042
     Dates: start: 20190924
  21. CEPACOL LOZENGE [Concomitant]
     Indication: OROPHARYNGEAL PAIN
     Route: 048
     Dates: start: 20190924

REACTIONS (1)
  - Abdominal infection [Recovered/Resolved]

NARRATIVE: CASE EVENT DATE: 20191104
